FAERS Safety Report 4951636-0 (Version None)
Quarter: 2006Q1

REPORT INFORMATION
  Report Type: 
  Country: None (occurrence: None)
  Receive Date: 20060322
  Receipt Date: 20060322
  Transmission Date: 20060701
  Serious: No
  Sender: FDA-Public Use
  Company Number: None

PATIENT
  Age: 56 Year
  Sex: Male

DRUGS (1)
  1. LEVOFLOXACIN [Suspect]
     Indication: CHRONIC SINUSITIS
     Dosage: ONCE DAILY PO
     Route: 048

REACTIONS (3)
  - INSOMNIA [None]
  - MYALGIA [None]
  - TENDON DISORDER [None]
